FAERS Safety Report 16419430 (Version 1)
Quarter: 2019Q2

REPORT INFORMATION
  Report Type: Spontaneous
  Country: US (occurrence: US)
  Receive Date: 20190612
  Receipt Date: 20190612
  Transmission Date: 20190711
  Serious: Yes (Other)
  Sender: FDA-Public Use
  Company Number: US-TORRENT-00008866

PATIENT
  Sex: Female

DRUGS (1)
  1. LOSARTAN AND HYDROCHLOROTHIAZIDE [Suspect]
     Active Substance: HYDROCHLOROTHIAZIDE\LOSARTAN POTASSIUM
     Indication: HYPERTENSION
     Dosage: ONE TABLET ONCE A DAY.
     Dates: end: 20190604

REACTIONS (7)
  - Dizziness [Unknown]
  - Nephrolithiasis [Unknown]
  - Blood urine present [Unknown]
  - Fatigue [Unknown]
  - Thrombosis [Unknown]
  - Malaise [Unknown]
  - Abdominal pain upper [Unknown]
